FAERS Safety Report 4332231-3 (Version None)
Quarter: 2004Q1

REPORT INFORMATION
  Report Type: 
  Country: None (occurrence: None)
  Receive Date: 20040331
  Receipt Date: 20040315
  Transmission Date: 20041129
  Serious: Yes (Other)
  Sender: FDA-Public Use
  Company Number: CA_040306754

PATIENT
  Sex: Male

DRUGS (5)
  1. HUMULIN N [Suspect]
     Indication: DIABETES MELLITUS
     Dosage: 38 U DAY
  2. HUMALOG [Suspect]
     Indication: DIABETES MELLITUS
     Dosage: 36 U DAY
  3. COVERSYL (PERINDOPRIL) [Concomitant]
  4. HYDROCHLOROTHIAZIDE [Concomitant]
  5. METHIMAZOLE [Concomitant]

REACTIONS (2)
  - NIGHT SWEATS [None]
  - SHOCK [None]
